FAERS Safety Report 4857969-0 (Version None)
Quarter: 2005Q4

REPORT INFORMATION
  Report Type: 
  Country: None (occurrence: None)
  Receive Date: 20051219
  Receipt Date: 20050425
  Transmission Date: 20060501
  Serious: No
  Sender: FDA-Public Use
  Company Number: US-GLAXOSMITHKLINE-A0555527A

PATIENT
  Age: 70 Year
  Sex: Female

DRUGS (2)
  1. NICODERM CQ [Suspect]
     Dates: end: 20050422
  2. WELLBUTRIN [Concomitant]

REACTIONS (5)
  - BLOOD PRESSURE DECREASED [None]
  - CRYING [None]
  - HEART RATE INCREASED [None]
  - INSOMNIA [None]
  - SENSORY DISTURBANCE [None]
